FAERS Safety Report 6610553-0 (Version None)
Quarter: 2010Q1

REPORT INFORMATION
  Report Type: 
  Country: None (occurrence: None)
  Receive Date: 20100302
  Receipt Date: 20100219
  Transmission Date: 20100710
  Serious: Yes (Hospitalization, Disabling, Other)
  Sender: FDA-Public Use
  Company Number: FR-PFIZER INC-2008073330

PATIENT
  Sex: Male
  Weight: 73 kg

DRUGS (3)
  1. MEDROL [Suspect]
     Indication: UPPER LIMB FRACTURE
     Dates: start: 20061204
  2. NASONEX [Suspect]
     Indication: NASOPHARYNGITIS
     Route: 045
     Dates: start: 20030415, end: 20080315
  3. RHINOCORT [Suspect]
     Indication: ASTHMA
     Dosage: UNK
     Route: 055
     Dates: start: 20030415, end: 20080315

REACTIONS (6)
  - ABASIA [None]
  - OSTEOARTHRITIS [None]
  - OSTEONECROSIS [None]
  - PAIN IN EXTREMITY [None]
  - PARAESTHESIA [None]
  - SLEEP DISORDER [None]
